FAERS Safety Report 7324370-X (Version None)
Quarter: 2011Q1

REPORT INFORMATION
  Report Type: 
  Country: None (occurrence: None)
  Receive Date: 20110301
  Receipt Date: 20110223
  Transmission Date: 20110831
  Serious: No
  Sender: FDA-Public Use
  Company Number: US-PFIZER INC-2011040821

PATIENT
  Sex: Female
  Weight: 51.247 kg

DRUGS (4)
  1. LEVOTHROID [Concomitant]
     Indication: THYROID DISORDER
     Dosage: 0.75 MG, 1X/DAY
     Route: 048
  2. ADVIL CONGESTION RELIEF [Suspect]
     Indication: RESPIRATORY TRACT CONGESTION
     Dosage: 10 MG, 3X/DAY
     Route: 048
     Dates: start: 20110222
  3. ADVIL CONGESTION RELIEF [Suspect]
     Indication: HEADACHE
  4. ADVIL LIQUI-GELS [Suspect]
     Dosage: UNK
     Route: 048

REACTIONS (2)
  - ILL-DEFINED DISORDER [None]
  - DRUG INEFFECTIVE [None]
